FAERS Safety Report 20225966 (Version 1)
Quarter: 2021Q4

REPORT INFORMATION
  Report Type: Spontaneous
  Country: US (occurrence: US)
  Receive Date: 20211224
  Receipt Date: 20211224
  Transmission Date: 20220303
  Serious: Yes (Other)
  Sender: FDA-Public Use
  Company Number: US-AVET LIFESCIENCES LTD-2021-AVET-000081

PATIENT
  Sex: Male

DRUGS (2)
  1. ALFUZOSIN HYDROCHLORIDE [Interacting]
     Active Substance: ALFUZOSIN HYDROCHLORIDE
     Indication: Arrhythmia
  2. AMIODARONE [Interacting]
     Active Substance: AMIODARONE
     Indication: Arrhythmia

REACTIONS (3)
  - Arrhythmia [Unknown]
  - Urinary tract disorder [Unknown]
  - Drug interaction [Unknown]
